FAERS Safety Report 20448429 (Version 3)
Quarter: 2022Q4

REPORT INFORMATION
  Report Type: Spontaneous
  Country: JP (occurrence: JP)
  Receive Date: 20220209
  Receipt Date: 20221206
  Transmission Date: 20230112
  Serious: No
  Sender: FDA-Public Use
  Company Number: JP-GLAXOSMITHKLINE-JP2022JPN019131

PATIENT

DRUGS (8)
  1. SOTROVIMAB [Suspect]
     Active Substance: SOTROVIMAB
     Indication: COVID-19
     Dosage: 500 MG/DAY
     Route: 041
     Dates: start: 20220201, end: 20220201
  2. COMIRNATY [Suspect]
     Active Substance: TOZINAMERAN
     Indication: COVID-19 prophylaxis
     Dosage: 0.3 ML
     Route: 030
     Dates: start: 202109
  3. COMIRNATY [Suspect]
     Active Substance: TOZINAMERAN
     Indication: COVID-19 prophylaxis
     Dosage: 0.3 ML
     Route: 030
     Dates: start: 202110
  4. MAGNESIUM OXIDE [Suspect]
     Active Substance: MAGNESIUM OXIDE
     Indication: Constipation
     Dosage: 990 MG/DAY
     Route: 048
  5. TRANEXAMIC ACID [Suspect]
     Active Substance: TRANEXAMIC ACID
     Dosage: 1500 MG/DAY
     Route: 048
  6. CARBOCYSTEINE [Suspect]
     Active Substance: CARBOCYSTEINE
     Dosage: 1500 MG/DAY
     Route: 048
  7. ACETAMINOPHEN [Suspect]
     Active Substance: ACETAMINOPHEN
     Dosage: 600 MG/DOSE, AS NEEDED
     Route: 048
  8. LIDOCAINE\TRIBENOSIDE [Suspect]
     Active Substance: LIDOCAINE\TRIBENOSIDE
     Dosage: 2 G/DAY

REACTIONS (2)
  - Exposure during pregnancy [Unknown]
  - Live birth [Unknown]
